FAERS Safety Report 21269514 (Version 1)
Quarter: 2022Q3

REPORT INFORMATION
  Report Type: Spontaneous
  Country: CA (occurrence: CA)
  Receive Date: 20220830
  Receipt Date: 20220830
  Transmission Date: 20221027
  Serious: Yes (Other)
  Sender: FDA-Public Use
  Company Number: None

PATIENT
  Age: 5 Year
  Sex: Male

DRUGS (5)
  1. BUSULFAN [Suspect]
     Active Substance: BUSULFAN
     Indication: Immunosuppression
  2. FLUDARABINE [Suspect]
     Active Substance: FLUDARABINE PHOSPHATE
     Indication: Immunosuppression
  3. MYCOPHENOLATE MOFETIL [Suspect]
     Active Substance: MYCOPHENOLATE MOFETIL
     Indication: Graft versus host disease
  4. CYCLOSPORINE [Suspect]
     Active Substance: CYCLOSPORINE
     Indication: Graft versus host disease
  5. BUSULFAN [Suspect]
     Active Substance: BUSULFAN
     Indication: Immunosuppression
     Dosage: ALSO RECEIVED 12.5 MG/KG

REACTIONS (1)
  - Bacteraemia [Unknown]
